FAERS Safety Report 7772496 (Version 2)
Quarter: 2014Q2

REPORT INFORMATION
  Report Type: Spontaneous
  Country: ES (occurrence: None)
  Receive Date: 20101230
  Receipt Date: 20140514
  Transmission Date: 20141212
  Serious: Yes (Disabling)
  Sender: FDA-Public Use
  Company Number: JPI-P-013238

PATIENT
  Age: 27 Year
  Sex: Male

DRUGS (4)
  1. XYREM (SODIUM OXYBATE) ORAL SOLUTION, 500MG/ML? [Suspect]
     Indication: NARCOLEPSY
     Route: 048
     Dates: start: 20101119, end: 20101122
  2. XYREM (SODIUM OXYBATE) ORAL SOLUTION, 500MG/ML? [Suspect]
     Indication: CATAPLEXY
     Route: 048
     Dates: start: 20101119, end: 20101122
  3. ANAFRANIL (CLOMIIPRAMINE HYDROCHLORIDE) [Suspect]
     Indication: CATAPLEXY
     Route: 048
     Dates: start: 20101119, end: 20101122
  4. REQUIP (ROPINIROLE HYDROCHLORIDE) [Concomitant]

REACTIONS (7)
  - Abasia [None]
  - Activities of daily living impaired [None]
  - Tremor [None]
  - Musculoskeletal stiffness [None]
  - Salivary hypersecretion [None]
  - Condition aggravated [None]
  - Parkinson^s disease [None]
